FAERS Safety Report 12365704 (Version 1)
Quarter: 2016Q2

REPORT INFORMATION
  Report Type: Spontaneous
  Country: US (occurrence: US)
  Receive Date: 20160513
  Receipt Date: 20160513
  Transmission Date: 20160815
  Serious: Yes (Hospitalization)
  Sender: FDA-Public Use
  Company Number: US-GLAXOSMITHKLINE-US2016067074

PATIENT
  Sex: Female

DRUGS (2)
  1. ADVAIR DISKUS [Suspect]
     Active Substance: FLUTICASONE PROPIONATE\SALMETEROL XINAFOATE
     Indication: CHRONIC OBSTRUCTIVE PULMONARY DISEASE
     Dosage: 1 PUFF(S), BID
     Route: 055
     Dates: start: 201507, end: 201604
  2. ADVAIR DISKUS [Suspect]
     Active Substance: FLUTICASONE PROPIONATE\SALMETEROL XINAFOATE
     Dosage: 1 PUFF(S), QD
     Route: 055
     Dates: start: 201604

REACTIONS (11)
  - Fall [Recovering/Resolving]
  - Oxygen saturation decreased [Recovering/Resolving]
  - Secretion discharge [Recovering/Resolving]
  - Condition aggravated [Recovering/Resolving]
  - Cough [Recovering/Resolving]
  - Dry eye [Unknown]
  - Overdose [Unknown]
  - Ankle fracture [Recovering/Resolving]
  - Eye disorder [Not Recovered/Not Resolved]
  - Prescribed underdose [Unknown]
  - Therapeutic response unexpected [Unknown]

NARRATIVE: CASE EVENT DATE: 201512
